FAERS Safety Report 19398122 (Version 1)
Quarter: 2021Q2

REPORT INFORMATION
  Report Type: Spontaneous
  Country: US (occurrence: US)
  Receive Date: 20210610
  Receipt Date: 20210610
  Transmission Date: 20210717
  Serious: Yes (Other)
  Sender: FDA-Public Use
  Company Number: US-PFIZER INC-8577

PATIENT
  Age: 66 Year
  Sex: Male

DRUGS (9)
  1. SULFAMETHOXAZOLE/TRIMETHOPRIM [Suspect]
     Active Substance: SULFAMETHOXAZOLE\TRIMETHOPRIM
     Indication: PNEUMONIA
     Dosage: 300 MG OF TRIMETHOPRIM AND 1500 MG OF SULFAMETHOXAZOLE EVERY 6 HOURS
     Route: 042
  2. LAMIVUDINE. [Concomitant]
     Active Substance: LAMIVUDINE
     Route: 065
  3. ZIDOVUDINE. [Concomitant]
     Active Substance: ZIDOVUDINE
     Route: 065
  4. ERYTHROMYCIN. [Concomitant]
     Active Substance: ERYTHROMYCIN
     Indication: PNEUMONIA
     Route: 065
  5. ASPIRIN (E.C.) [Concomitant]
     Active Substance: ASPIRIN
     Indication: PROPHYLAXIS
     Route: 065
  6. CEFTIZOXIME [Concomitant]
     Active Substance: CEFTIZOXIME
     Indication: PNEUMONIA
     Route: 042
  7. SAQUINAVIR [Concomitant]
     Active Substance: SAQUINAVIR
     Route: 065
  8. NITROGLYCERIN. [Concomitant]
     Active Substance: NITROGLYCERIN
     Indication: PROPHYLAXIS
     Dosage: PATCH
     Route: 062
  9. IBUPROFEN. [Concomitant]
     Active Substance: IBUPROFEN
     Indication: PROPHYLAXIS
     Route: 065

REACTIONS (5)
  - Blood pH decreased [Recovered/Resolved]
  - Tachypnoea [Recovered/Resolved]
  - Methaemoglobinaemia [Recovered/Resolved]
  - Tachycardia [Recovered/Resolved]
  - Hypotension [Recovered/Resolved]
